FAERS Safety Report 12316260 (Version 1)
Quarter: 2016Q2

REPORT INFORMATION
  Report Type: Spontaneous
  Country: US (occurrence: US)
  Receive Date: 20160428
  Receipt Date: 20160428
  Transmission Date: 20160815
  Serious: No
  Sender: FDA-Public Use
  Company Number: US-ELI_LILLY_AND_COMPANY-US201604001919

PATIENT
  Sex: Female

DRUGS (2)
  1. HUMALOG [Suspect]
     Active Substance: INSULIN LISPRO
     Indication: TYPE 2 DIABETES MELLITUS
     Dosage: 6 U, TID
     Route: 065
     Dates: start: 201602
  2. LANTUS [Concomitant]
     Active Substance: INSULIN GLARGINE

REACTIONS (6)
  - Hypersensitivity [Unknown]
  - Abdominal pain upper [Recovered/Resolved]
  - Back pain [Recovered/Resolved]
  - Eructation [Recovered/Resolved]
  - Abdominal discomfort [Recovered/Resolved]
  - Dyspepsia [Recovered/Resolved]

NARRATIVE: CASE EVENT DATE: 201602
